FAERS Safety Report 13747273 (Version 2)
Quarter: 2018Q1

REPORT INFORMATION
  Report Type: Report from Study
  Country: US (occurrence: US)
  Receive Date: 20170712
  Receipt Date: 20180222
  Transmission Date: 20180508
  Serious: Yes (Other)
  Sender: FDA-Public Use
  Company Number: US-BAYER-2017-116730

PATIENT
  Age: 69 Year
  Sex: Male

DRUGS (2)
  1. NEXAVAR [Suspect]
     Active Substance: SORAFENIB
     Indication: HEPATOCELLULAR CARCINOMA
     Dosage: 400.00 MG, BID
     Route: 048
     Dates: end: 20170612
  2. NEXAVAR [Suspect]
     Active Substance: SORAFENIB
     Indication: HEPATOCELLULAR CARCINOMA
     Dosage: 200 MG, BID
     Route: 048

REACTIONS (8)
  - Pain in extremity [None]
  - Palmar-plantar erythrodysaesthesia syndrome [None]
  - Bronchitis [Not Recovered/Not Resolved]
  - Limb discomfort [None]
  - Weight decreased [Not Recovered/Not Resolved]
  - Blister [None]
  - Pain [None]
  - Cachexia [Not Recovered/Not Resolved]

NARRATIVE: CASE EVENT DATE: 20171212
